FAERS Safety Report 14592346 (Version 1)
Quarter: 2018Q1

REPORT INFORMATION
  Report Type: Spontaneous
  Country: FR (occurrence: FR)
  Receive Date: 20180302
  Receipt Date: 20180302
  Transmission Date: 20180509
  Serious: Yes (Life-Threatening, Hospitalization)
  Sender: FDA-Public Use
  Company Number: FR-AUROBINDO-AUR-APL-2018-010405

PATIENT
  Age: 87 Year
  Sex: Male
  Weight: 90 kg

DRUGS (15)
  1. STILNOX [Concomitant]
     Active Substance: ZOLPIDEM TARTRATE
     Dosage: 10 MILLIGRAM, ONCE A DAY
     Route: 048
     Dates: start: 20180120
  2. HUMALOG [Concomitant]
     Active Substance: INSULIN LISPRO
     Dosage: 20 INTERNATIONAL UNIT
     Route: 058
     Dates: start: 20100101
  3. MIRTAZAPINE A [Concomitant]
     Active Substance: MIRTAZAPINE
     Dosage: 20 MILLIGRAM
     Route: 048
  4. PANTOPRAZOLE                       /01263204/ [Concomitant]
     Active Substance: PANTOPRAZOLE SODIUM
     Dosage: 20 MILLIGRAM, ONCE A DAY
     Route: 048
  5. INSULATARD                         /00646002/ [Concomitant]
     Active Substance: INSULIN HUMAN
     Dosage: UNK
     Route: 058
  6. LASILIX                            /00032601/ [Suspect]
     Active Substance: FUROSEMIDE
     Indication: PRODUCT USED FOR UNKNOWN INDICATION
     Dosage: 240 MILLIGRAM, ONCE A DAY
     Route: 040
     Dates: start: 20180126, end: 20180129
  7. CORDARONE [Concomitant]
     Active Substance: AMIODARONE HYDROCHLORIDE
     Dosage: 200 MILLIGRAM
     Route: 048
     Dates: start: 20100101
  8. AMOXICILLIN. [Suspect]
     Active Substance: AMOXICILLIN
     Indication: PRODUCT USED FOR UNKNOWN INDICATION
     Dosage: 2 GRAM, ONCE A DAY
     Route: 065
     Dates: start: 20180120, end: 20180126
  9. CEFTRIAXONE SODIUM. [Concomitant]
     Active Substance: CEFTRIAXONE SODIUM
     Dosage: 2 GRAM, ONCE A DAY
     Route: 041
     Dates: start: 20180126
  10. COUMADINE [Concomitant]
     Active Substance: WARFARIN SODIUM
     Dosage: 2 MILLIGRAM, ONCE A DAY
     Route: 048
     Dates: start: 20160101
  11. PERINDOPRIL/INDAPAMIDE MYLAN [Concomitant]
     Dosage: UNK
     Route: 048
     Dates: start: 20160101, end: 20160125
  12. KEPPRA [Concomitant]
     Active Substance: LEVETIRACETAM
     Dosage: 500 MILLIGRAM
     Route: 048
     Dates: start: 20180112
  13. ACTISKENAN [Concomitant]
     Active Substance: MORPHINE SULFATE
     Dosage: 5 MILLIGRAM, ONCE A DAY
     Route: 058
     Dates: start: 20180119
  14. MACROGOL 4000 MYLAN [Concomitant]
     Dosage: 10 MILLIGRAM, ONCE A DAY
     Dates: start: 20160101
  15. VERSATIS [Concomitant]
     Active Substance: LIDOCAINE
     Dosage: 5 PERCENT
     Route: 003
     Dates: start: 20160119

REACTIONS (1)
  - Acute kidney injury [Recovering/Resolving]

NARRATIVE: CASE EVENT DATE: 20180124
